FAERS Safety Report 7819910-8 (Version None)
Quarter: 2011Q4

REPORT INFORMATION
  Report Type: 
  Country: None (occurrence: None)
  Receive Date: 20111018
  Receipt Date: 20100825
  Transmission Date: 20120403
  Serious: No
  Sender: FDA-Public Use
  Company Number: US-ASTRAZENECA-2010SE40294

PATIENT
  Age: 20 Year
  Sex: Female

DRUGS (2)
  1. SYMBICORT [Suspect]
     Dosage: 80/4.5
     Route: 055
  2. ORAL CONTRACEPTIVE [Concomitant]

REACTIONS (1)
  - URINARY RETENTION [None]
